FAERS Safety Report 12355985 (Version 6)
Quarter: 2016Q3

REPORT INFORMATION
  Report Type: Report from Study
  Country: US (occurrence: US)
  Receive Date: 20160511
  Receipt Date: 20160722
  Transmission Date: 20161109
  Serious: Yes (Hospitalization, Other)
  Sender: FDA-Public Use
  Company Number: US-BAYER-2016-077770

PATIENT
  Age: 59 Year
  Sex: Female

DRUGS (3)
  1. STIVARGA [Suspect]
     Active Substance: REGORAFENIB
     Indication: COLORECTAL CANCER METASTATIC
     Dosage: 80 MG, QD
     Route: 048
     Dates: start: 20160504, end: 20160518
  2. STIVARGA [Suspect]
     Active Substance: REGORAFENIB
     Indication: COLORECTAL CANCER METASTATIC
     Dosage: 40 MG, QD
     Route: 048
     Dates: start: 20160601, end: 20160703
  3. STIVARGA [Suspect]
     Active Substance: REGORAFENIB
     Indication: COLORECTAL CANCER METASTATIC
     Dosage: 80 MG, QD
     Route: 048
     Dates: start: 20160415, end: 20160427

REACTIONS (15)
  - Fatigue [None]
  - Blister [Not Recovered/Not Resolved]
  - Pneumonia [None]
  - Headache [None]
  - Blood pressure increased [None]
  - Ammonia increased [None]
  - Asthenia [None]
  - Hypoaesthesia [None]
  - Dizziness [None]
  - Tumour marker increased [None]
  - Gait disturbance [Not Recovered/Not Resolved]
  - Flatulence [None]
  - Drug hypersensitivity [None]
  - Blister [Not Recovered/Not Resolved]
  - Confusional state [None]

NARRATIVE: CASE EVENT DATE: 201604
